FAERS Safety Report 8153181-0 (Version None)
Quarter: 2012Q1

REPORT INFORMATION
  Report Type: 
  Country: None (occurrence: None)
  Receive Date: 20120221
  Receipt Date: 20120220
  Transmission Date: 20120608
  Serious: Yes (Death, Other)
  Sender: FDA-Public Use
  Company Number: US-BAYER-2011-011291

PATIENT
  Age: 83 Year
  Sex: Male

DRUGS (16)
  1. NEXAVAR [Suspect]
     Indication: PRODUCT USED FOR UNKNOWN INDICATION
     Dosage: 400 MG, BID
     Route: 048
  2. LISINOPRIL [Concomitant]
     Dosage: 5 MG, UNK
  3. LEXAPRO [Concomitant]
     Dosage: 5 MG, UNK
  4. ASPIRIN [Concomitant]
     Dosage: 81 MG, UNK
  5. ADVAIR DISKUS 100/50 [Concomitant]
     Dosage: 115/21
     Route: 055
  6. TORSEMIDE [Concomitant]
     Dosage: 10 MG, UNK
  7. CYPROHEPTADINE HCL [Concomitant]
     Dosage: 4 MG, UNK
  8. COREG [Concomitant]
     Indication: PRODUCT USED FOR UNKNOWN INDICATION
     Dosage: 20 MG, UNK
  9. ZEMPLAR [Concomitant]
     Dosage: 1 ?G, UNK
  10. ZETIA [Concomitant]
     Dosage: 10 MG, UNK
  11. PLAVIX [Concomitant]
     Dosage: 75 MG, UNK
  12. FOLBEE PLUS [Concomitant]
  13. PREVACID [Concomitant]
     Dosage: 30 UNK, UNK
  14. CRESTOR [Concomitant]
     Dosage: 20 MG, UNK
  15. ACETAMINOPHEN [Concomitant]
     Dosage: 325 MG, UNK
  16. RANEXA [Concomitant]
     Dosage: 500 MG, UNK

REACTIONS (2)
  - CEREBROVASCULAR ACCIDENT [None]
  - DEATH [None]
